FAERS Safety Report 6531885-0 (Version None)
Quarter: 2010Q1

REPORT INFORMATION
  Report Type: 
  Country: None (occurrence: None)
  Receive Date: 20100108
  Receipt Date: 20091230
  Transmission Date: 20100710
  Serious: Yes (Hospitalization, Other)
  Sender: FDA-Public Use
  Company Number: US-JNJFOC-20100100136

PATIENT
  Sex: Male
  Weight: 68.49 kg

DRUGS (6)
  1. DURAGESIC-100 [Suspect]
     Indication: BACK PAIN
     Route: 062
  2. DURAGESIC-100 [Suspect]
     Route: 062
  3. OXYCODONE HCL [Concomitant]
     Indication: PAIN
     Dosage: 10/325 MG
     Route: 048
  4. SYNTHROID [Concomitant]
     Indication: HYPOTHYROIDISM
     Dosage: 0.100 MG
     Route: 048
  5. PROTONIX [Concomitant]
     Indication: HIATUS HERNIA
     Route: 048
  6. PROTONIX [Concomitant]
     Indication: DYSPEPSIA
     Route: 048

REACTIONS (11)
  - BRONCHITIS [None]
  - CHRONIC OBSTRUCTIVE PULMONARY DISEASE [None]
  - DRUG EFFECT DECREASED [None]
  - DYSPEPSIA [None]
  - HYPERTENSION [None]
  - LUNG NEOPLASM [None]
  - NEURALGIA [None]
  - PRODUCT QUALITY ISSUE [None]
  - RHEUMATOID ARTHRITIS [None]
  - SKIN CANCER [None]
  - VOCAL CORD POLYP [None]
